FAERS Safety Report 7230832-6 (Version None)
Quarter: 2011Q1

REPORT INFORMATION
  Report Type: 
  Country: None (occurrence: None)
  Receive Date: 20110118
  Receipt Date: 20110112
  Transmission Date: 20110831
  Serious: Yes (Hospitalization)
  Sender: FDA-Public Use
  Company Number: JP-EISAI INC.-E2090-01134-SPO-JP

PATIENT
  Sex: Male

DRUGS (2)
  1. EXCEGRAN [Suspect]
     Indication: EPILEPSY
     Dosage: 100 MG
     Route: 048
     Dates: start: 20090316, end: 20090101
  2. EXCEGRAN [Suspect]
     Dosage: 300 MG DAILY
     Route: 048
     Dates: start: 20090101, end: 20090417

REACTIONS (1)
  - DRUG RASH WITH EOSINOPHILIA AND SYSTEMIC SYMPTOMS [None]
